FAERS Safety Report 7131732-2 (Version None)
Quarter: 2010Q4

REPORT INFORMATION
  Report Type: 
  Country: None (occurrence: None)
  Receive Date: 20101202
  Receipt Date: 20101117
  Transmission Date: 20110411
  Serious: Yes (Life-Threatening, Hospitalization)
  Sender: FDA-Public Use
  Company Number: IT-ELI_LILLY_AND_COMPANY-IT201011004722

PATIENT
  Sex: Male

DRUGS (5)
  1. ZYPREXA [Suspect]
     Indication: PSYCHOMOTOR HYPERACTIVITY
     Dosage: 2.5 MG, 3/D
     Route: 048
     Dates: start: 20100720, end: 20100729
  2. TRAZODONE HCL [Concomitant]
     Indication: PSYCHOMOTOR HYPERACTIVITY
     Dosage: 125 MG, DAILY (1/D)
     Route: 048
     Dates: start: 20100101, end: 20100729
  3. GLIBOMET [Concomitant]
     Dosage: 80 MG, UNK
  4. ITRIN [Concomitant]
     Dosage: 5 MG, UNK
  5. PROSTIDE [Concomitant]
     Dosage: 5 MG, UNK

REACTIONS (3)
  - BRONCHOPNEUMONIA [None]
  - RENAL FAILURE ACUTE [None]
  - SOPOR [None]
